FAERS Safety Report 10055481 (Version 1)
Quarter: 2014Q2

REPORT INFORMATION
  Report Type: Spontaneous
  Country: US (occurrence: US)
  Receive Date: 20140403
  Receipt Date: 20140403
  Transmission Date: 20141212
  Serious: No
  Sender: FDA-Public Use
  Company Number: US-009507513-1404USA002249

PATIENT
  Sex: Female

DRUGS (1)
  1. ZOCOR [Suspect]
     Route: 048

REACTIONS (8)
  - Palpitations [Unknown]
  - Dizziness [Unknown]
  - Vertigo [Unknown]
  - Nasal inflammation [Unknown]
  - Nasal septum disorder [Unknown]
  - Sinusitis [Unknown]
  - Hypertension [Unknown]
  - Acute sinusitis [Unknown]
